FAERS Safety Report 20360871 (Version 4)
Quarter: 2022Q2

REPORT INFORMATION
  Report Type: Spontaneous
  Country: US (occurrence: US)
  Receive Date: 20220121
  Receipt Date: 20220403
  Transmission Date: 20220721
  Serious: Yes (Other)
  Sender: FDA-Public Use
  Company Number: US-SA-SAC20220119000241

PATIENT
  Age: 20 Year
  Sex: Male

DRUGS (2)
  1. DUPIXENT [Suspect]
     Active Substance: DUPILUMAB
     Indication: Dermatitis atopic
     Dosage: 300 MG, QOW
     Route: 058
     Dates: start: 202110
  2. DUPIXENT [Suspect]
     Active Substance: DUPILUMAB
     Indication: Prurigo

REACTIONS (6)
  - Eye haemorrhage [Unknown]
  - Vision blurred [Unknown]
  - Ocular hyperaemia [Unknown]
  - Eye pruritus [Not Recovered/Not Resolved]
  - Conjunctivitis [Unknown]
  - Product use in unapproved indication [Unknown]

NARRATIVE: CASE EVENT DATE: 20211001
